FAERS Safety Report 7123014-X (Version None)
Quarter: 2010Q4

REPORT INFORMATION
  Report Type: 
  Country: None (occurrence: None)
  Receive Date: 20101124
  Receipt Date: 20101112
  Transmission Date: 20110411
  Serious: Yes (Other)
  Sender: FDA-Public Use
  Company Number: ES-ELI_LILLY_AND_COMPANY-ES201011003985

PATIENT
  Sex: Female
  Weight: 51 kg

DRUGS (4)
  1. FORTEO [Suspect]
     Indication: OSTEOPOROSIS
     Dosage: 20 UG, DAILY (1/D)
     Route: 058
     Dates: start: 20100304, end: 20101028
  2. ZOCOR [Concomitant]
     Indication: HYPERLIPIDAEMIA
     Dosage: UNK, DAILY (1/D)
     Route: 048
  3. HIDROFEROL [Concomitant]
     Indication: HYPOVITAMINOSIS
     Dosage: 2 DROPS, DAILY (1/D)
     Route: 048
     Dates: start: 20101001
  4. SEROXAT [Concomitant]
     Indication: TRAUMATIC SHOCK
     Dosage: UNK, DAILY (1/D)
     Route: 048

REACTIONS (4)
  - AMNESIA [None]
  - HYPOVITAMINOSIS [None]
  - ROAD TRAFFIC ACCIDENT [None]
  - TRAUMATIC SHOCK [None]
